FAERS Safety Report 11068818 (Version 1)
Quarter: 2015Q2

REPORT INFORMATION
  Report Type: Spontaneous
  Country: FR (occurrence: FR)
  Receive Date: 20150427
  Receipt Date: 20150427
  Transmission Date: 20150821
  Serious: Yes (Hospitalization)
  Sender: FDA-Public Use
  Company Number: FR-ABBVIE-15K-056-1378383-00

PATIENT
  Age: 28 Year
  Sex: Female

DRUGS (1)
  1. HUMIRA [Suspect]
     Active Substance: ADALIMUMAB
     Indication: CROHN^S DISEASE
     Route: 058
     Dates: start: 20111207, end: 201412

REACTIONS (5)
  - Hypersensitivity vasculitis [Recovering/Resolving]
  - Purpura [Recovering/Resolving]
  - Oedema [Recovering/Resolving]
  - Arthralgia [Recovering/Resolving]
  - Antinuclear antibody increased [Unknown]

NARRATIVE: CASE EVENT DATE: 2014
